FAERS Safety Report 8719942 (Version 2)
Quarter: 2012Q4

REPORT INFORMATION
  Report Type: 
  Country: US (occurrence: US)
  Receive Date: 20120813
  Receipt Date: 20121119
  Transmission Date: 20130627
  Serious: Yes (Other)
  Sender: FDA-Public Use
  Company Number: US-BAYER-2012-080256

PATIENT
  Age: 36 Year
  Sex: Female
  Weight: 63 kg

DRUGS (2)
  1. YAZ [Suspect]
     Indication: PREMENSTRUAL SYNDROME
     Dosage: UNK
     Dates: start: 2001
  2. YAZ [Suspect]
     Indication: PREMENSTRUAL DYSPHORIC DISORDER

REACTIONS (9)
  - Gallbladder injury [None]
  - Injury [None]
  - Pain [None]
  - Fear of disease [None]
  - Pain [None]
  - Gastrointestinal disorder [None]
  - Food intolerance [None]
  - Diarrhoea [None]
  - Dyspepsia [None]
